FAERS Safety Report 9431604 (Version 5)
Quarter: 2014Q1

REPORT INFORMATION
  Report Type: Spontaneous
  Country: US (occurrence: US)
  Receive Date: 20130731
  Receipt Date: 20140320
  Transmission Date: 20141002
  Serious: Yes (Hospitalization, Other)
  Sender: FDA-Public Use
  Company Number: US-BIOGENIDEC-2013BI068383

PATIENT
  Age: 40 Year
  Sex: Female

DRUGS (1)
  1. TYSABRI [Suspect]
     Indication: MULTIPLE SCLEROSIS
     Route: 042
     Dates: start: 20090915, end: 20130923

REACTIONS (5)
  - Vaginal haemorrhage [Recovered/Resolved]
  - Adenocarcinoma of the cervix [Not Recovered/Not Resolved]
  - Endometrial adenocarcinoma [Not Recovered/Not Resolved]
  - Uterine cancer [Recovered/Resolved]
  - Feeling abnormal [Recovered/Resolved]
